FAERS Safety Report 25773105 (Version 4)
Quarter: 2025Q4

REPORT INFORMATION
  Report Type: Report from Study
  Country: CA (occurrence: CA)
  Receive Date: 20250908
  Receipt Date: 20251211
  Transmission Date: 20260117
  Serious: Yes (Hospitalization)
  Sender: MERCK SHARP & DOHME LLC
  Company Number: CA-009507513-2319196

PATIENT
  Age: 75 Year
  Sex: Male
  Weight: 75 kg

DRUGS (19)
  1. WINREVAIR [Suspect]
     Active Substance: SOTATERCEPT-CSRK
     Indication: Pulmonary arterial hypertension
     Dosage: 0.3 MG/KG Q3W
     Route: 065
     Dates: start: 20250715, end: 20250807
  2. WINREVAIR [Suspect]
     Active Substance: SOTATERCEPT-CSRK
     Dosage: 0.3 MG/KG Q3W
     Route: 065
     Dates: start: 20251106
  3. WINREVAIR [Suspect]
     Active Substance: SOTATERCEPT-CSRK
  4. WINREVAIR [Suspect]
     Active Substance: SOTATERCEPT-CSRK
  5. WINREVAIR [Suspect]
     Active Substance: SOTATERCEPT-CSRK
  6. WINREVAIR [Suspect]
     Active Substance: SOTATERCEPT-CSRK
  7. WINREVAIR [Suspect]
     Active Substance: SOTATERCEPT-CSRK
  8. WINREVAIR [Suspect]
     Active Substance: SOTATERCEPT-CSRK
  9. BISOPROLOL [Concomitant]
     Active Substance: BISOPROLOL
     Dosage: 1.25 MG DAILY
     Route: 065
  10. FLOMAX [Concomitant]
     Active Substance: TAMSULOSIN HYDROCHLORIDE
     Dosage: 0.4 MG DAILY
     Route: 065
  11. GABAPENTIN [Concomitant]
     Active Substance: GABAPENTIN
     Dosage: TIME INTERVAL: 0.33333333 DAYS: 200 MG TID
     Route: 065
  12. LASIX [Concomitant]
     Active Substance: FUROSEMIDE
     Dosage: 80 MG BID
     Route: 065
  13. OMEPRAZOLE [Concomitant]
     Active Substance: OMEPRAZOLE
     Dosage: 8 MG DAILY
     Route: 065
  14. SIMVASTATIN [Concomitant]
     Active Substance: SIMVASTATIN
     Dosage: 10 MG DAILY
     Route: 065
  15. SYNJARDY [Concomitant]
     Active Substance: EMPAGLIFLOZIN\METFORMIN HYDROCHLORIDE
     Dosage: 1 TABLETS/CAPSULES BID
     Route: 048
  16. BOSENTAN [Concomitant]
     Active Substance: BOSENTAN
     Route: 065
     Dates: start: 20230701
  17. TADALAFIL [Concomitant]
     Active Substance: TADALAFIL
     Route: 065
     Dates: start: 20230301
  18. REMODULIN [Concomitant]
     Active Substance: TREPROSTINIL
     Route: 065
     Dates: start: 20250101
  19. APIXABAN [Concomitant]
     Active Substance: APIXABAN
     Dosage: 5 MG BID
     Route: 065

REACTIONS (4)
  - Gastrointestinal haemorrhage [Unknown]
  - Inappropriate schedule of product administration [Unknown]
  - Pain in extremity [Recovered/Resolved]
  - Inappropriate schedule of product administration [Unknown]

NARRATIVE: CASE EVENT DATE: 20250101
